FAERS Safety Report 16478182 (Version 4)
Quarter: 2019Q3

REPORT INFORMATION
  Report Type: Spontaneous
  Country: US (occurrence: US)
  Receive Date: 20190626
  Receipt Date: 20190809
  Transmission Date: 20191004
  Serious: Yes (Hospitalization)
  Sender: FDA-Public Use
  Company Number: US-PFIZER INC-2019207293

PATIENT
  Age: 68 Year
  Sex: Male
  Weight: 108.84 kg

DRUGS (2)
  1. LYRICA [Suspect]
     Active Substance: PREGABALIN
     Indication: NEUROPATHY PERIPHERAL
     Dosage: 200 MG, 3X/DAY
     Route: 048
     Dates: start: 2005
  2. OXYCODONE [Concomitant]
     Active Substance: OXYCODONE
     Indication: PAIN
     Dosage: 30 MG, 3X/DAY

REACTIONS (4)
  - Paralysis [Not Recovered/Not Resolved]
  - Feeling abnormal [Unknown]
  - Impaired driving ability [Unknown]
  - Arthralgia [Unknown]
